FAERS Safety Report 12100682 (Version 2)
Quarter: 2016Q1

REPORT INFORMATION
  Report Type: Spontaneous
  Country: US (occurrence: US)
  Receive Date: 20160222
  Receipt Date: 20160315
  Transmission Date: 20160526
  Serious: Yes (Other)
  Sender: FDA-Public Use
  Company Number: US-GLAXOSMITHKLINE-US2016024747

PATIENT
  Age: 48 Year
  Sex: Male
  Weight: 147.85 kg

DRUGS (15)
  1. FOSINOPRIL [Concomitant]
     Active Substance: FOSINOPRIL
  2. GLYBURIDE. [Concomitant]
     Active Substance: GLYBURIDE
  3. SIMVASTATIN. [Concomitant]
     Active Substance: SIMVASTATIN
  4. TANZEUM [Suspect]
     Active Substance: ALBIGLUTIDE
     Dosage: 50 UNK, UNK
     Dates: start: 20151204, end: 20160119
  5. LANTUS [Concomitant]
     Active Substance: INSULIN GLARGINE
  6. TANZEUM [Suspect]
     Active Substance: ALBIGLUTIDE
     Indication: DIABETES MELLITUS
     Dosage: 30 MG, WE
     Route: 058
     Dates: start: 20150824, end: 201511
  7. FAMOTIDINE. [Concomitant]
     Active Substance: FAMOTIDINE
  8. ASPIRIN. [Concomitant]
     Active Substance: ASPIRIN
  9. METFORMIN [Concomitant]
     Active Substance: METFORMIN HYDROCHLORIDE
  10. DULERA [Concomitant]
     Active Substance: FORMOTEROL FUMARATE DIHYDRATE\MOMETASONE FUROATE
  11. MONOPRIL [Concomitant]
     Active Substance: FOSINOPRIL SODIUM
  12. TOPROL XL [Concomitant]
     Active Substance: METOPROLOL SUCCINATE
  13. ENALAPRIL [Concomitant]
     Active Substance: ENALAPRIL
  14. NOVOLIN 70/30 [Concomitant]
     Active Substance: INSULIN HUMAN
  15. HYDROCHLOROTHIAZIDE. [Concomitant]
     Active Substance: HYDROCHLOROTHIAZIDE

REACTIONS (3)
  - Pancreatitis [Unknown]
  - Abdominal pain upper [Unknown]
  - Abdominal pain [Unknown]

NARRATIVE: CASE EVENT DATE: 20160117
